FAERS Safety Report 10222787 (Version 2)
Quarter: 2014Q2

REPORT INFORMATION
  Report Type: Report from Study
  Country: US (occurrence: US)
  Receive Date: 20140606
  Receipt Date: 20140625
  Transmission Date: 20141212
  Serious: Yes (Hospitalization)
  Sender: FDA-Public Use
  Company Number: US-EXELIXIS-XL18414004349

PATIENT
  Age: 83 Year
  Sex: Male
  Weight: 79.91 kg

DRUGS (6)
  1. XL184 [Suspect]
     Indication: PROSTATE CANCER
     Dosage: 20 MG, QD
     Route: 048
     Dates: start: 20140414, end: 20140524
  2. XL184 [Suspect]
     Indication: PROSTATE CANCER
     Dosage: 1000 MG, QD
     Route: 048
     Dates: start: 20140414, end: 2014
  3. XL184 [Suspect]
     Dosage: 250 MG, QD
     Route: 048
     Dates: start: 2014, end: 20140524
  4. XL184 [Suspect]
     Indication: PROSTATE CANCER
     Dosage: 5 MG, BID
     Route: 048
     Dates: start: 20140414, end: 20140524
  5. ROCEPHIN [Concomitant]
  6. ZITHROMAX [Concomitant]

REACTIONS (3)
  - Nasopharyngitis [Unknown]
  - Chest pain [Unknown]
  - Constipation [Unknown]
